FAERS Safety Report 21609157 (Version 4)
Quarter: 2023Q1

REPORT INFORMATION
  Report Type: Report from Study
  Country: US (occurrence: US)
  Receive Date: 20221117
  Receipt Date: 20230130
  Transmission Date: 20230417
  Serious: Yes (Other)
  Sender: FDA-Public Use
  Company Number: US-TAKEDA-2022TUS065809

PATIENT
  Age: 57 Year
  Sex: Female
  Weight: 77.09 kg

DRUGS (42)
  1. HUMAN IMMUNOGLOBULIN G [Suspect]
     Active Substance: HUMAN IMMUNOGLOBULIN G
     Indication: Myasthenia gravis
     Dosage: 400 MILLIGRAM/KILOGRAM
     Route: 042
     Dates: start: 20220910
  2. HUMAN IMMUNOGLOBULIN G [Suspect]
     Active Substance: HUMAN IMMUNOGLOBULIN G
     Dosage: 40 GRAM, Q3WEEKS
     Route: 042
     Dates: start: 20220910
  3. HUMAN IMMUNOGLOBULIN G [Suspect]
     Active Substance: HUMAN IMMUNOGLOBULIN G
     Dosage: 70 GRAM, Q3WEEKS
     Route: 042
     Dates: start: 20220910
  4. DIPHENHYDRAMINE [Concomitant]
     Active Substance: DIPHENHYDRAMINE
  5. EPINEPHRINE [Concomitant]
     Active Substance: EPINEPHRINE
  6. ACETAMINOPHEN\HYDROCODONE [Concomitant]
     Active Substance: ACETAMINOPHEN\HYDROCODONE
  7. SODIUM CHLORIDE [Concomitant]
     Active Substance: SODIUM CHLORIDE
  8. IRON [Concomitant]
     Active Substance: IRON
  9. SULFACETAMIDE SODIUM [Concomitant]
     Active Substance: SULFACETAMIDE SODIUM
  10. OMEPRAZOLE [Concomitant]
     Active Substance: OMEPRAZOLE
  11. FLONASE ALLERGY RELIEF [Concomitant]
     Active Substance: FLUTICASONE PROPIONATE
  12. MAXZIDE [Concomitant]
     Active Substance: HYDROCHLOROTHIAZIDE\TRIAMTERENE
  13. PREDNISONE [Concomitant]
     Active Substance: PREDNISONE
  14. LORAZEPAM [Concomitant]
     Active Substance: LORAZEPAM
  15. SENNA S [Concomitant]
     Active Substance: DOCUSATE SODIUM\SENNA LEAF
  16. ASPIRIN [Concomitant]
     Active Substance: ASPIRIN
  17. PREGABALIN [Concomitant]
     Active Substance: PREGABALIN
  18. MYCOPHENOLATE MOFETIL [Concomitant]
     Active Substance: MYCOPHENOLATE MOFETIL
  19. VITAMIN D3 [Concomitant]
     Active Substance: CHOLECALCIFEROL
  20. CALCIUM [Concomitant]
     Active Substance: CALCIUM
  21. HEPARIN [Concomitant]
     Active Substance: HEPARIN SODIUM
  22. Lmx [Concomitant]
  23. VITAMIN B COMPLEX [Concomitant]
     Active Substance: CYANOCOBALAMIN\DEXPANTHENOL\NIACINAMIDE\PYRIDOXINE HYDROCHLORIDE\RIBOFLAVIN 5^-PHOSPHATE SODIUM\THIA
  24. OFLOXACIN [Concomitant]
     Active Substance: OFLOXACIN
  25. GUAIFENESIN [Concomitant]
     Active Substance: GUAIFENESIN
  26. TRIAMCINOLONE ACETONIDE [Concomitant]
     Active Substance: TRIAMCINOLONE ACETONIDE
  27. ACETAMINOPHEN [Concomitant]
     Active Substance: ACETAMINOPHEN
  28. IBUPROFEN [Concomitant]
     Active Substance: IBUPROFEN
  29. MONTELUKAST [Concomitant]
     Active Substance: MONTELUKAST SODIUM
  30. HYDROCORTISONE [Concomitant]
     Active Substance: HYDROCORTISONE
  31. AMITRIPTYLINE [Concomitant]
     Active Substance: AMITRIPTYLINE
  32. AZELASTINE [Concomitant]
     Active Substance: AZELASTINE
  33. MIRALAX [Concomitant]
     Active Substance: POLYETHYLENE GLYCOL 3350
  34. PEPCID [Concomitant]
     Active Substance: FAMOTIDINE
  35. LIDOCAINE [Concomitant]
     Active Substance: LIDOCAINE
  36. FLOVENT [Concomitant]
     Active Substance: FLUTICASONE PROPIONATE
  37. FLUTICASONE PROPIONATE [Concomitant]
     Active Substance: FLUTICASONE PROPIONATE
  38. CEFUROXIME [Concomitant]
     Active Substance: CEFUROXIME
  39. TRAZODONE HCL [Concomitant]
     Active Substance: TRAZODONE HYDROCHLORIDE
  40. METRONIDAZOLE [Concomitant]
     Active Substance: METRONIDAZOLE
  41. STOOL SOFTENER (DOCUSATE) [Concomitant]
     Active Substance: DOCUSATE
  42. SODIUM CHLORIDE [Concomitant]
     Active Substance: SODIUM CHLORIDE

REACTIONS (10)
  - Diverticulitis [Unknown]
  - Pyrexia [Unknown]
  - Post procedural infection [Not Recovered/Not Resolved]
  - Hordeolum [Unknown]
  - Wound [Unknown]
  - Joint stiffness [Unknown]
  - Dehydration [Unknown]
  - Fatigue [Unknown]
  - Headache [Unknown]
  - Off label use [Unknown]

NARRATIVE: CASE EVENT DATE: 20220910
